FAERS Safety Report 23249849 (Version 5)
Quarter: 2024Q1

REPORT INFORMATION
  Report Type: Spontaneous
  Country: US (occurrence: US)
  Receive Date: 20231201
  Receipt Date: 20240328
  Transmission Date: 20240409
  Serious: Yes (Other)
  Sender: FDA-Public Use
  Company Number: US-BRISTOL-MYERS SQUIBB COMPANY-2023-171360

PATIENT
  Age: 53 Year
  Sex: Female

DRUGS (25)
  1. CAMZYOS [Suspect]
     Active Substance: MAVACAMTEN
     Indication: Hypertrophic cardiomyopathy
     Route: 048
     Dates: start: 20230719
  2. CAMZYOS [Suspect]
     Active Substance: MAVACAMTEN
  3. AZITHROMYCIN [Concomitant]
     Active Substance: AZITHROMYCIN
     Indication: Product used for unknown indication
     Dates: start: 20240125
  4. TRESIBA [Concomitant]
     Active Substance: INSULIN DEGLUDEC
  5. PANTOPRAZOLE [Concomitant]
     Active Substance: PANTOPRAZOLE
  6. MAGNESIUM CITRATE [Concomitant]
     Active Substance: MAGNESIUM CITRATE
  7. PROBIOTICS NOS [Concomitant]
     Active Substance: PROBIOTICS NOS
  8. METOPROLOL [Concomitant]
     Active Substance: METOPROLOL
  9. FOLIC ACID [Concomitant]
     Active Substance: FOLIC ACID
  10. VALSARTAN [Concomitant]
     Active Substance: VALSARTAN
  11. ZINC [Concomitant]
     Active Substance: PYRITHIONE ZINC\ZINC\ZINC CHLORIDE
  12. FERROUS SULFATE [Concomitant]
     Active Substance: FERROUS SULFATE
  13. XARELTO [Concomitant]
     Active Substance: RIVAROXABAN
  14. SPIRONOLACTONE [Concomitant]
     Active Substance: SPIRONOLACTONE
  15. FISH OIL [Concomitant]
     Active Substance: FISH OIL
  16. COENZYME Q10 [Concomitant]
     Active Substance: DIETARY SUPPLEMENT\UBIDECARENONE
  17. VITAMIN D3 [Concomitant]
     Active Substance: CHOLECALCIFEROL
  18. TRADJENTA [Concomitant]
     Active Substance: LINAGLIPTIN
  19. VITAMIN C [Concomitant]
     Active Substance: ASCORBIC ACID
  20. REPATHA [Concomitant]
     Active Substance: EVOLOCUMAB
  21. METHOTREXATE [Concomitant]
     Active Substance: METHOTREXATE
  22. ALPHA LIPOIC ACID [Concomitant]
     Active Substance: .ALPHA.-LIPOIC ACID
  23. TAMIFLU [Concomitant]
     Active Substance: OSELTAMIVIR PHOSPHATE
  24. PRALUENT [Concomitant]
     Active Substance: ALIROCUMAB
  25. BUMETANIDE [Concomitant]
     Active Substance: BUMETANIDE

REACTIONS (4)
  - Heart rate irregular [Unknown]
  - Eye disorder [Unknown]
  - Bronchitis [Unknown]
  - Influenza [Unknown]

NARRATIVE: CASE EVENT DATE: 20240103
